FAERS Safety Report 13242855 (Version 1)
Quarter: 2017Q1

REPORT INFORMATION
  Report Type: Spontaneous
  Country: US (occurrence: US)
  Receive Date: 20170216
  Receipt Date: 20170216
  Transmission Date: 20170428
  Serious: No
  Sender: FDA-Public Use
  Company Number: None

PATIENT
  Sex: Female

DRUGS (2)
  1. CLOMIPHENE [Suspect]
     Active Substance: CLOMIPHENE
  2. CLOMIPRAMINE HCL [Suspect]
     Active Substance: CLOMIPRAMINE

REACTIONS (10)
  - Palpitations [None]
  - Treatment noncompliance [None]
  - Drug dispensing error [None]
  - Nausea [None]
  - Panic reaction [None]
  - Wrong drug administered [None]
  - Feeling jittery [None]
  - Dry mouth [None]
  - Impaired work ability [None]
  - Cold sweat [None]

NARRATIVE: CASE EVENT DATE: 2016
